FAERS Safety Report 26149202 (Version 1)
Quarter: 2025Q4

REPORT INFORMATION
  Report Type: Spontaneous
  Country: EU (occurrence: EU)
  Receive Date: 20251212
  Receipt Date: 20251212
  Transmission Date: 20260117
  Serious: Yes (Congenital Anomaly)
  Sender: ROCHE
  Company Number: EU-ROCHE-10000455745

PATIENT

DRUGS (2)
  1. OCREVUS [Suspect]
     Active Substance: OCRELIZUMAB
     Indication: Product used for unknown indication
     Dosage: LAST DOSE OF OCRELIZUMAB: DEC-2024
     Route: 064
     Dates: start: 20211103
  2. OCREVUS [Suspect]
     Active Substance: OCRELIZUMAB
     Dosage: LAST DOSE OF OCRELIZUMAB: DEC-2024
     Route: 064
     Dates: start: 2024

REACTIONS (3)
  - Exomphalos [Unknown]
  - Congenital absence of cranial vault [Unknown]
  - Foetal exposure during pregnancy [Unknown]

NARRATIVE: CASE EVENT DATE: 20251010
